FAERS Safety Report 8524860-8 (Version None)
Quarter: 2012Q3

REPORT INFORMATION
  Report Type: 
  Country: None (occurrence: None)
  Receive Date: 20120720
  Receipt Date: 20120717
  Transmission Date: 20120928
  Serious: Yes (Other)
  Sender: FDA-Public Use
  Company Number: PHHY2012US061281

PATIENT
  Age: 65 Year
  Sex: Male

DRUGS (2)
  1. AMIODARONE HCL [Suspect]
     Dosage: 20 MG, DAILY
  2. AMIODARONE HCL [Suspect]
     Dosage: 400 MG, DAILY

REACTIONS (5)
  - COUGH [None]
  - DYSPNOEA EXERTIONAL [None]
  - HYPERTHYROIDISM [None]
  - HYPERPLASIA [None]
  - LUNG DISORDER [None]
